FAERS Safety Report 11106721 (Version 1)
Quarter: 2015Q2

REPORT INFORMATION
  Report Type: Spontaneous
  Country: US (occurrence: None)
  Receive Date: 20150511
  Receipt Date: 20150511
  Transmission Date: 20150821
  Serious: No
  Sender: FDA-Public Use
  Company Number: None

PATIENT
  Age: 96 Year
  Sex: Female
  Weight: 45.36 kg

DRUGS (2)
  1. LIPITOR [Suspect]
     Active Substance: ATORVASTATIN CALCIUM
  2. JUST VITAMINS [Concomitant]

REACTIONS (3)
  - Erythema [None]
  - Skin haemorrhage [None]
  - Skin atrophy [None]

NARRATIVE: CASE EVENT DATE: 20150501
